FAERS Safety Report 21830301 (Version 5)
Quarter: 2024Q1

REPORT INFORMATION
  Report Type: Report from Study
  Country: AU (occurrence: AU)
  Receive Date: 20230106
  Receipt Date: 20240318
  Transmission Date: 20240410
  Serious: Yes (Other)
  Sender: FDA-Public Use
  Company Number: AU-002147023-NVSC2022AU135959

PATIENT
  Age: 68 Year
  Sex: Female

DRUGS (1)
  1. MAYZENT [Suspect]
     Active Substance: SIPONIMOD
     Indication: Secondary progressive multiple sclerosis
     Dosage: 2 MG, QD
     Route: 048
     Dates: start: 20220726

REACTIONS (17)
  - Uveitis [Not Recovered/Not Resolved]
  - Cataract [Unknown]
  - Multiple sclerosis relapse [Unknown]
  - Visual impairment [Unknown]
  - Rosacea [Unknown]
  - Heart rate irregular [Unknown]
  - Viral infection [Unknown]
  - Cough [Unknown]
  - Fatigue [Unknown]
  - Joint swelling [Unknown]
  - Swelling face [Unknown]
  - Skin atrophy [Unknown]
  - Feeling hot [Unknown]
  - Weight increased [Unknown]
  - Nasopharyngitis [Unknown]
  - Malaise [Unknown]
  - Product prescribing error [Unknown]

NARRATIVE: CASE EVENT DATE: 20221201
